FAERS Safety Report 23110109 (Version 3)
Quarter: 2023Q4

REPORT INFORMATION
  Report Type: Spontaneous
  Country: CN (occurrence: CN)
  Receive Date: 20231026
  Receipt Date: 20231121
  Transmission Date: 20240110
  Serious: Yes (Death, Hospitalization, Other)
  Sender: FDA-Public Use
  Company Number: CN-HORIZON THERAPEUTICS-HZN-2023-008424

PATIENT

DRUGS (5)
  1. RAVICTI [Suspect]
     Active Substance: GLYCEROL PHENYLBUTYRATE
     Indication: Ornithine transcarbamoylase deficiency
     Dosage: 2.5 ML, TID
     Route: 048
     Dates: start: 20230821
  2. ARGININE [Concomitant]
     Active Substance: ARGININE
     Dosage: 500MG/TIMES, BID
  3. CITRULLINE [Concomitant]
     Active Substance: CITRULLINE
     Dosage: 500MG/ TIMES, BID
  4. LEVOCARNITINE [Concomitant]
     Active Substance: LEVOCARNITINE
     Route: 042
  5. SODIUM BENZOATE [Concomitant]
     Active Substance: SODIUM BENZOATE
     Dosage: 1.25G, QID

REACTIONS (13)
  - Ascites [Unknown]
  - Acidosis [Unknown]
  - Electrolyte imbalance [Unknown]
  - Hyperuricaemia [Unknown]
  - Respiratory alkalosis [Unknown]
  - Metabolic acidosis [Unknown]
  - Hypoproteinaemia [Unknown]
  - Coma [Fatal]
  - Jaundice acholuric [Fatal]
  - Cholestasis [Fatal]
  - Mycoplasma infection [Unknown]
  - Adenovirus infection [Unknown]
  - Pneumonia [Unknown]

NARRATIVE: CASE EVENT DATE: 20230923
